FAERS Safety Report 13916727 (Version 2)
Quarter: 2017Q4

REPORT INFORMATION
  Report Type: Spontaneous
  Country: BR (occurrence: BR)
  Receive Date: 20170829
  Receipt Date: 20171012
  Transmission Date: 20180320
  Serious: Yes (Other)
  Sender: FDA-Public Use
  Company Number: BR-JNJFOC-20170820408

PATIENT
  Sex: Male

DRUGS (1)
  1. RISPERDAL [Suspect]
     Active Substance: RISPERIDONE
     Indication: AUTISM SPECTRUM DISORDER
     Dosage: FOR FIVE YEARS
     Route: 048

REACTIONS (14)
  - Intentional self-injury [Recovering/Resolving]
  - Euphoric mood [Recovering/Resolving]
  - Depression [Recovering/Resolving]
  - Impulsive behaviour [Recovering/Resolving]
  - Panic disorder [Recovering/Resolving]
  - Product taste abnormal [Unknown]
  - Illusion [Recovering/Resolving]
  - Persecutory delusion [Recovering/Resolving]
  - Aggression [Recovering/Resolving]
  - Drug ineffective [Unknown]
  - Abnormal behaviour [Recovering/Resolving]
  - Social avoidant behaviour [Recovering/Resolving]
  - Irritability [Recovering/Resolving]
  - Treatment noncompliance [Unknown]
